FAERS Safety Report 7236522-8 (Version None)
Quarter: 2011Q1

REPORT INFORMATION
  Report Type: 
  Country: None (occurrence: None)
  Receive Date: 20110120
  Receipt Date: 20110117
  Transmission Date: 20110831
  Serious: Yes (Other)
  Sender: FDA-Public Use
  Company Number: TR-ROXANE LABORATORIES, INC.-2011-RO-00070RO

PATIENT
  Age: 24 Year
  Sex: Female

DRUGS (2)
  1. METHOTREXATE [Suspect]
     Indication: CENTRAL NERVOUS SYSTEM LYMPHOMA
     Route: 037
  2. DEXAMETHASONE [Suspect]

REACTIONS (2)
  - ALOPECIA [None]
  - ANAEMIA MEGALOBLASTIC [None]
